FAERS Safety Report 9859525 (Version 2)
Quarter: 2014Q1

REPORT INFORMATION
  Report Type: Report from Study
  Country: US (occurrence: US)
  Receive Date: 20140131
  Receipt Date: 20140131
  Transmission Date: 20141002
  Serious: Yes (Other)
  Sender: FDA-Public Use
  Company Number: US-TEVA-452530USA

PATIENT
  Sex: Female
  Weight: 63.56 kg

DRUGS (6)
  1. PROVIGIL [Suspect]
     Indication: NARCOLEPSY
     Dosage: 100 MILLIGRAM DAILY;
     Dates: start: 201310, end: 20131203
  2. MODAFINIL [Suspect]
     Indication: NARCOLEPSY
     Dosage: 100 MILLIGRAM DAILY;
     Dates: start: 201310, end: 20131130
  3. VITAMIN B12 [Concomitant]
     Indication: VITAMIN B12 DEFICIENCY
     Dosage: .0333 DOSAGE FORMS DAILY;
     Dates: start: 2000
  4. PRENATAL VITAMINS [Concomitant]
     Dosage: 1 TABLET DAILY;
     Dates: start: 20131217
  5. VITAMIN B6 [Concomitant]
     Indication: VITAMIN B6 DEFICIENCY
     Dates: start: 2013
  6. PROGESTERONE [Concomitant]

REACTIONS (2)
  - Abortion spontaneous [Unknown]
  - Paraesthesia [Not Recovered/Not Resolved]
